FAERS Safety Report 7792384-1 (Version None)
Quarter: 2011Q3

REPORT INFORMATION
  Report Type: 
  Country: None (occurrence: None)
  Receive Date: 20110930
  Receipt Date: 20110930
  Transmission Date: 20111222
  Serious: Yes (Other)
  Sender: FDA-Public Use
  Company Number: None

PATIENT
  Age: 63 Year
  Sex: Female
  Weight: 58.9676 kg

DRUGS (1)
  1. NITROFURANTOIN [Suspect]
     Indication: URINARY TRACT INFECTION
     Dosage: 1 2 TIMES A DAY
     Dates: start: 20110517, end: 20110801

REACTIONS (4)
  - JAUNDICE [None]
  - WEIGHT DECREASED [None]
  - DYSPEPSIA [None]
  - PRURITUS [None]
